FAERS Safety Report 13738733 (Version 1)
Quarter: 2017Q3

REPORT INFORMATION
  Report Type: Report from Study
  Country: US (occurrence: US)
  Receive Date: 20170710
  Receipt Date: 20170710
  Transmission Date: 20171127
  Serious: Yes (Death)
  Sender: FDA-Public Use
  Company Number: US-SAOL THERAPEUTICS-2017SAO00066

PATIENT
  Sex: Female

DRUGS (12)
  1. COMPOUNDED BACLOFEN [Suspect]
     Active Substance: BACLOFEN
     Indication: PAIN
     Dosage: 143.94 ?G, \DAY
     Route: 037
     Dates: start: 20150409
  2. COMPOUNDED BACLOFEN [Suspect]
     Active Substance: BACLOFEN
     Dosage: 124.99 ?G, \DAY
     Route: 037
  3. COMPOUNDED BACLOFEN [Suspect]
     Active Substance: BACLOFEN
     Dosage: 82.39 ?G, \DAY
     Route: 037
     Dates: start: 20150917
  4. COMPOUNDED BACLOFEN [Suspect]
     Active Substance: BACLOFEN
     Indication: COMPLEX REGIONAL PAIN SYNDROME
     Dosage: 75.03 ?G, \DAY
     Route: 037
     Dates: start: 20130927
  5. DILAUDID [Suspect]
     Active Substance: HYDROMORPHONE HYDROCHLORIDE
     Dosage: 0.6003 MG, \DAY
     Route: 037
     Dates: start: 20130927
  6. DILAUDID [Suspect]
     Active Substance: HYDROMORPHONE HYDROCHLORIDE
     Dosage: 1.1515 MG, \DAY
     Route: 037
     Dates: start: 20150409
  7. BUPIVACAINE. [Suspect]
     Active Substance: BUPIVACAINE
     Dosage: 17.273 MG, \DAY
     Route: 037
     Dates: start: 20150409
  8. BUPIVACAINE. [Suspect]
     Active Substance: BUPIVACAINE
     Dosage: 9.004 MG, \DAY
     Route: 037
     Dates: start: 20130927
  9. DILAUDID [Suspect]
     Active Substance: HYDROMORPHONE HYDROCHLORIDE
     Dosage: 0.9999 UNK, UNK
     Route: 037
  10. DILAUDID [Suspect]
     Active Substance: HYDROMORPHONE HYDROCHLORIDE
     Dosage: 0.6591 MG, \DAY
     Route: 037
     Dates: start: 20150917
  11. BUPIVACAINE. [Suspect]
     Active Substance: BUPIVACAINE
     Dosage: 9.887 MG, \DAY
     Route: 037
     Dates: start: 20150917
  12. BUPIVACAINE. [Suspect]
     Active Substance: BUPIVACAINE
     Dosage: 14.999 MG, \DAY
     Route: 037

REACTIONS (2)
  - Death [Fatal]
  - Medical device site pain [Not Recovered/Not Resolved]
